FAERS Safety Report 20909404 (Version 1)
Quarter: 2022Q2

REPORT INFORMATION
  Report Type: Spontaneous
  Country: FR (occurrence: FR)
  Receive Date: 20220603
  Receipt Date: 20220603
  Transmission Date: 20220720
  Serious: Yes (Other)
  Sender: FDA-Public Use
  Company Number: FR-ABBVIE-22K-056-4419852-00

PATIENT
  Age: 71 Year
  Sex: Male

DRUGS (1)
  1. UPADACITINIB [Suspect]
     Active Substance: UPADACITINIB
     Indication: Rheumatic disorder
     Route: 048
     Dates: start: 202110

REACTIONS (4)
  - Neuroendocrine carcinoma of the skin [Not Recovered/Not Resolved]
  - Off label use [Unknown]
  - Salivary gland mass [Unknown]
  - Lymphadenopathy [Unknown]

NARRATIVE: CASE EVENT DATE: 20220404
